FAERS Safety Report 12220654 (Version 4)
Quarter: 2016Q4

REPORT INFORMATION
  Report Type: Report from Study
  Country: MX (occurrence: MX)
  Receive Date: 20160330
  Receipt Date: 20161222
  Transmission Date: 20170207
  Serious: Yes (Death, Hospitalization, Disabling, Other)
  Sender: FDA-Public Use
  Company Number: PHHY2016MX041736

PATIENT
  Age: 67 Year
  Sex: Male

DRUGS (4)
  1. STALEVO [Suspect]
     Active Substance: CARBIDOPA\ENTACAPONE\LEVODOPA
     Indication: PARKINSON^S DISEASE
     Dosage: 3 DF, QD (CARPIDOPA 50 MG AND ENDOCAPONE 200 MG AND LEVODOPA 200 MG)
     Route: 065
  2. SIFROL [Concomitant]
     Active Substance: PRAMIPEXOLE
     Indication: PARKINSON^S DISEASE
     Dosage: 1 DF, Q12H
     Route: 048
     Dates: start: 2009, end: 201610
  3. AKINETON [Concomitant]
     Active Substance: BIPERIDEN HYDROCHLORIDE
     Indication: PRODUCT USED FOR UNKNOWN INDICATION
     Route: 065
  4. STALEVO [Suspect]
     Active Substance: CARBIDOPA\ENTACAPONE\LEVODOPA
     Dosage: 1 DF, Q8H (CARPIDOPA 200 MG AND ENDOCAPONE 200 MG AND LEVODOPA 500 MG)
     Route: 048
     Dates: start: 2009, end: 201610

REACTIONS (7)
  - Dysarthria [Unknown]
  - Gastritis [Recovered/Resolved]
  - Pyrexia [Unknown]
  - Pneumonia [Fatal]
  - Incorrect dosage administered [Unknown]
  - Gait disturbance [Unknown]
  - Prostatic disorder [Recovered/Resolved]

NARRATIVE: CASE EVENT DATE: 20160927
